FAERS Safety Report 7211440-X (Version None)
Quarter: 2011Q1

REPORT INFORMATION
  Report Type: 
  Country: None (occurrence: None)
  Receive Date: 20110105
  Receipt Date: 20101227
  Transmission Date: 20110831
  Serious: Yes (Other)
  Sender: FDA-Public Use
  Company Number: CN-ASTRAZENECA-2010SE61019

PATIENT
  Age: 65 Year
  Sex: Female

DRUGS (1)
  1. DIPRIVAN [Suspect]
     Indication: GENERAL ANAESTHESIA
     Route: 042
     Dates: start: 20100501

REACTIONS (2)
  - CEREBRAL INFARCTION [None]
  - PERIODIC LIMB MOVEMENT DISORDER [None]
